FAERS Safety Report 8308388-6 (Version None)
Quarter: 2012Q2

REPORT INFORMATION
  Report Type: 
  Country: None (occurrence: None)
  Receive Date: 20120420
  Receipt Date: 20120326
  Transmission Date: 20120825
  Serious: Yes (Hospitalization)
  Sender: FDA-Public Use
  Company Number: DSJ-2012-05813

PATIENT
  Age: 41 Year
  Sex: Male

DRUGS (3)
  1. OLMESARTAN MEDOXOMIL [Suspect]
     Indication: HYPERTENSION
  2. ATENOLOL [Concomitant]
  3. ISOPROTERENOL (ISOPRENALINE) (ISOPRENALINE) [Concomitant]

REACTIONS (6)
  - LOSS OF CONSCIOUSNESS [None]
  - ASTHENIA [None]
  - SUBARACHNOID HAEMORRHAGE [None]
  - FATIGUE [None]
  - SYNCOPE [None]
  - SKULL FRACTURE [None]
